FAERS Safety Report 18444827 (Version 5)
Quarter: 2021Q1

REPORT INFORMATION
  Report Type: Spontaneous
  Country: US (occurrence: US)
  Receive Date: 20201030
  Receipt Date: 20210217
  Transmission Date: 20210419
  Serious: Yes (Other)
  Sender: FDA-Public Use
  Company Number: US-GLAXOSMITHKLINE-US2020AMR215367

PATIENT
  Sex: Female

DRUGS (2)
  1. ZEJULA [Suspect]
     Active Substance: NIRAPARIB
     Indication: OVARIAN CANCER
     Dosage: 200 MG, QD
     Route: 048
     Dates: start: 20201014
  2. ZEJULA [Suspect]
     Active Substance: NIRAPARIB
     Dosage: 200 MG, QD
     Route: 048
     Dates: start: 2020, end: 20210125

REACTIONS (25)
  - Flushing [Unknown]
  - Feeling hot [Unknown]
  - Oral discomfort [Unknown]
  - Insomnia [Unknown]
  - Dry eye [Unknown]
  - Renal impairment [Unknown]
  - Hepatic enzyme increased [Unknown]
  - Thirst [Unknown]
  - Malaise [Unknown]
  - Aspartate aminotransferase increased [Unknown]
  - Alanine aminotransferase increased [Unknown]
  - Dry mouth [Unknown]
  - Adverse drug reaction [Unknown]
  - Drug ineffective [Unknown]
  - Blood pressure increased [Unknown]
  - Gastrointestinal pain [Unknown]
  - Malignant neoplasm progression [Unknown]
  - Irritable bowel syndrome [Unknown]
  - Vitreous floaters [Unknown]
  - Tongue disorder [Unknown]
  - Heart rate increased [Unknown]
  - Blood pressure diastolic increased [Unknown]
  - Pain [Unknown]
  - Rash [Unknown]
  - Blood alkaline phosphatase increased [Unknown]
